FAERS Safety Report 25578250 (Version 1)
Quarter: 2025Q3

REPORT INFORMATION
  Report Type: Spontaneous
  Country: US (occurrence: US)
  Receive Date: 20250718
  Receipt Date: 20250718
  Transmission Date: 20251020
  Serious: Yes (Disabling)
  Sender: VIVUS
  Company Number: US-VIVUS LLC-2025V10000391

PATIENT

DRUGS (2)
  1. QSYMIA [Suspect]
     Active Substance: PHENTERMINE HYDROCHLORIDE\TOPIRAMATE
     Indication: Weight increased
     Dosage: 1 DOSAGE FORM, QD
     Route: 048
  2. QSYMIA [Suspect]
     Active Substance: PHENTERMINE HYDROCHLORIDE\TOPIRAMATE
     Indication: Weight increased
     Dosage: 1 DOSAGE FORM, QD
     Route: 048

REACTIONS (1)
  - Disability [Not Recovered/Not Resolved]
